FAERS Safety Report 4846429-9 (Version None)
Quarter: 2005Q4

REPORT INFORMATION
  Report Type: 
  Country: None (occurrence: None)
  Receive Date: 20051202
  Receipt Date: 20051121
  Transmission Date: 20060501
  Serious: Yes (Other)
  Sender: FDA-Public Use
  Company Number: HQWYE437025JUL05

PATIENT
  Age: 57 Year
  Sex: Female

DRUGS (1)
  1. EFFEXOR XR [Suspect]
     Dates: start: 19990101

REACTIONS (6)
  - DRUG DEPENDENCE [None]
  - NONSPECIFIC REACTION [None]
  - PSYCHOTIC DISORDER [None]
  - REFUSAL OF TREATMENT BY PATIENT [None]
  - SEROTONIN SYNDROME [None]
  - SUICIDE ATTEMPT [None]
